FAERS Safety Report 17365385 (Version 3)
Quarter: 2020Q2

REPORT INFORMATION
  Report Type: Spontaneous
  Country: FR (occurrence: FR)
  Receive Date: 20200204
  Receipt Date: 20200425
  Transmission Date: 20200713
  Serious: Yes (Other)
  Sender: FDA-Public Use
  Company Number: FR-ACCORD-171539

PATIENT
  Age: 11 Year
  Sex: Male
  Weight: 46 kg

DRUGS (15)
  1. THALIDOMIDE [Suspect]
     Active Substance: THALIDOMIDE
     Indication: MEDULLOBLASTOMA RECURRENT
     Dosage: 3 MG/KG MILLIGRAM(S)/KILOGRAM
     Route: 048
     Dates: start: 20190429, end: 20191115
  2. TRIMETHOPRIM. [Concomitant]
     Active Substance: TRIMETHOPRIM
     Indication: OPPORTUNISTIC INFECTION PROPHYLAXIS
     Dosage: 480 MILLIGRAM, 1/WEEK
     Route: 048
  3. TRIMETHOPRIM. [Concomitant]
     Active Substance: TRIMETHOPRIM
     Indication: OPPORTUNISTIC INFECTION PROPHYLAXIS
     Route: 048
  4. CYTARABINE/CYTARABINE HYDROCHLORIDE/CYTARABINE OCFOSFATE [Suspect]
     Active Substance: CYTARABINE
     Indication: MEDULLOBLASTOMA RECURRENT
     Dosage: 60 MILLIGRAM, 1/WEEK
     Route: 037
     Dates: start: 20190513
  5. ETOPOSIDE. [Suspect]
     Active Substance: ETOPOSIDE
     Indication: MEDULLOBLASTOMA RECURRENT
     Dosage: 5 INJECTIONS EVERY 4 WEEKS
     Route: 039
     Dates: start: 20190429
  6. CYCLOPHOSPHAMIDE/CYCLOPHOSPHAMIDE MONOHYDRATE [Suspect]
     Active Substance: CYCLOPHOSPHAMIDE
     Indication: MEDULLOBLASTOMA RECURRENT
     Dosage: 2,5MG/KG (MAX 100MG), LES LAST 3 WEEKS OF EACH PART OF EACH CYCLE
     Route: 048
     Dates: start: 20190520
  7. SULFAMETHOXAZOLE/SULFAMETHOXAZOLE SODIUM [Concomitant]
     Active Substance: SULFAMETHOXAZOLE
     Indication: OPPORTUNISTIC INFECTION PROPHYLAXIS
     Route: 048
  8. ETOPOSIDE. [Suspect]
     Active Substance: ETOPOSIDE
     Indication: MEDULLOBLASTOMA RECURRENT
     Dosage: 35-50MG/M2, THE FIRST 3 WEEKS OF EACH PART OF EACH CYCLE
     Route: 048
     Dates: start: 20190429
  9. FENOFIBRATE. [Suspect]
     Active Substance: FENOFIBRATE
     Indication: MEDULLOBLASTOMA RECURRENT
     Dosage: 90 MILLIGRAM/SQ. METER, QD
     Route: 048
     Dates: start: 20190429
  10. SULFAMETHOXAZOLE/SULFAMETHOXAZOLE SODIUM [Concomitant]
     Active Substance: SULFAMETHOXAZOLE
     Indication: OPPORTUNISTIC INFECTION PROPHYLAXIS
     Route: 048
  11. ENANTONE LP [Suspect]
     Active Substance: LEUPROLIDE ACETATE
     Indication: BLOOD GROWTH HORMONE DECREASED
     Route: 058
     Dates: start: 201910
  12. AVASTIN [Suspect]
     Active Substance: BEVACIZUMAB
     Indication: MEDULLOBLASTOMA RECURRENT
     Dosage: 10 MILLIGRAM/KILOGRAM, 1/WEEK
     Route: 042
     Dates: start: 20190429
  13. CELECOXIB. [Suspect]
     Active Substance: CELECOXIB
     Indication: MEDULLOBLASTOMA RECURRENT
     Dosage: QD
     Route: 048
     Dates: start: 20190429
  14. CYTARABINE/CYTARABINE HYDROCHLORIDE/CYTARABINE OCFOSFATE [Suspect]
     Active Substance: CYTARABINE
     Indication: MEDULLOBLASTOMA RECURRENT
     Dosage: 60 MILLIGRAM, 1/WEEK
     Route: 037
     Dates: start: 20190513
  15. ETOPOSIDE. [Suspect]
     Active Substance: ETOPOSIDE
     Indication: MEDULLOBLASTOMA RECURRENT
     Dosage: 35-50 MG PER SQ M, THE FIRST 3 WEEKS OF EACH PART OF EACH CYCLE
     Route: 048
     Dates: start: 20190429

REACTIONS (2)
  - Condition aggravated [Not Recovered/Not Resolved]
  - Bipolar disorder [Not Recovered/Not Resolved]

NARRATIVE: CASE EVENT DATE: 201910
